FAERS Safety Report 7744411-5 (Version None)
Quarter: 2011Q3

REPORT INFORMATION
  Report Type: 
  Country: None (occurrence: None)
  Receive Date: 20110912
  Receipt Date: 20110909
  Transmission Date: 20111222
  Serious: Yes (Hospitalization)
  Sender: FDA-Public Use
  Company Number: DE-BRISTOL-MYERS SQUIBB COMPANY-15258544

PATIENT
  Age: 54 Year
  Sex: Male
  Weight: 72 kg

DRUGS (9)
  1. CISPLATIN [Suspect]
     Indication: NON-SMALL CELL LUNG CANCER
     Dosage: RECENT DOSE 28-JUL-2010.
     Route: 042
     Dates: start: 20100424
  2. PEMETREXED DISODIUM [Suspect]
     Indication: NON-SMALL CELL LUNG CANCER
     Dosage: RECENT DOSE 28-JUL-2010.INTERRUPTED ON 18AUG2010; RESTARTED ON 20AUG2010
     Route: 042
     Dates: start: 20100424
  3. DEXAMETHASONE [Concomitant]
     Indication: PROPHYLAXIS
     Dates: start: 20100423
  4. BEVACIZUMAB [Suspect]
     Indication: NON-SMALL CELL LUNG CANCER
     Dosage: RECENT DOSE 28-JUL-2010. INTERRUPTED ON 18AUG2010; RESTARTED ON 20AUG2010
     Route: 042
     Dates: start: 20100424
  5. FOLIC ACID [Concomitant]
     Indication: PROPHYLAXIS
     Dates: start: 20100417
  6. KALINOR [Concomitant]
     Indication: HYPOKALAEMIA
     Dates: start: 20100727
  7. CALCILAC [Concomitant]
     Indication: HYPOKALAEMIA
     Dosage: CALCILAC KT
     Dates: start: 20100429
  8. VITAMIN B-12 [Concomitant]
     Indication: PROPHYLAXIS
     Dates: start: 20100416
  9. ZOPICLONE [Concomitant]
     Indication: INSOMNIA
     Dates: start: 20100614

REACTIONS (2)
  - NAUSEA [None]
  - VERTIGO [None]
